FAERS Safety Report 9326252 (Version 1)
Quarter: 2013Q2

REPORT INFORMATION
  Report Type: Spontaneous
  Country: US (occurrence: None)
  Receive Date: 20130603
  Receipt Date: 20130603
  Transmission Date: 20140414
  Serious: Yes (Other)
  Sender: FDA-Public Use
  Company Number: None

PATIENT
  Age: 70 Year
  Sex: Female

DRUGS (1)
  1. STIVARGA [Suspect]
     Indication: COLON CANCER
     Route: 048
     Dates: start: 20130225, end: 20130524

REACTIONS (4)
  - Fatigue [None]
  - Palmar-plantar erythrodysaesthesia syndrome [None]
  - Psoriasis [None]
  - Pain of skin [None]
